FAERS Safety Report 11366947 (Version 1)
Quarter: 2015Q3

REPORT INFORMATION
  Report Type: Spontaneous
  Country: US (occurrence: US)
  Receive Date: 20150811
  Receipt Date: 20150811
  Transmission Date: 20151125
  Serious: No
  Sender: FDA-Public Use
  Company Number: US-ELI_LILLY_AND_COMPANY-US201109007292

PATIENT
  Age: 51 Year
  Sex: Male

DRUGS (4)
  1. HYDROCODONE [Concomitant]
     Active Substance: HYDROCODONE
  2. AXIRON [Suspect]
     Active Substance: TESTOSTERONE
  3. DIOVAN [Concomitant]
     Active Substance: VALSARTAN
  4. SIMVASTATIN. [Concomitant]
     Active Substance: SIMVASTATIN

REACTIONS (2)
  - Application site pain [Recovered/Resolved]
  - Blood testosterone decreased [Unknown]
